FAERS Safety Report 23467163 (Version 4)
Quarter: 2025Q3

REPORT INFORMATION
  Report Type: Spontaneous
  Country: JP (occurrence: JP)
  Receive Date: 20240201
  Receipt Date: 20250803
  Transmission Date: 20251020
  Serious: Yes (Hospitalization, Other)
  Sender: ALEXION PHARMACEUTICALS
  Company Number: 2024A021922

PATIENT
  Age: 64 Year
  Sex: Female
  Weight: 43 kg

DRUGS (6)
  1. LYNPARZA [Suspect]
     Active Substance: OLAPARIB
     Dates: start: 20221024, end: 20221118
  2. LYNPARZA [Suspect]
     Active Substance: OLAPARIB
     Dates: start: 20221202, end: 20230526
  3. LYNPARZA [Suspect]
     Active Substance: OLAPARIB
     Dates: start: 20230721, end: 20240111
  4. CARBOCYSTEINE [Concomitant]
     Active Substance: CARBOCYSTEINE
     Indication: Bronchitis chronic
     Dosage: 500 MILLIGRAM, TID
     Dates: start: 20221104
  5. AMBROXOL HYDROCHLORIDE [Concomitant]
     Active Substance: AMBROXOL HYDROCHLORIDE
     Indication: Bronchitis chronic
     Dosage: 45 MILLIGRAM, QD
     Dates: start: 20221104
  6. MAGNESIUM OXIDE [Concomitant]
     Active Substance: MAGNESIUM OXIDE
     Indication: Constipation
     Dosage: 300 MILLIGRAM, TID
     Dates: start: 201901

REACTIONS (3)
  - Pulmonary toxicity [Recovering/Resolving]
  - Myelosuppression [Recovering/Resolving]
  - Bronchitis chronic [Recovering/Resolving]

NARRATIVE: CASE EVENT DATE: 20221104
